FAERS Safety Report 6560486-3 (Version None)
Quarter: 2010Q1

REPORT INFORMATION
  Report Type: 
  Country: None (occurrence: None)
  Receive Date: 20100129
  Receipt Date: 20090921
  Transmission Date: 20100710
  Serious: No
  Sender: FDA-Public Use
  Company Number: US-ABBOTT-09P-163-0598859-00

PATIENT
  Sex: Female

DRUGS (1)
  1. HUMIRA [Suspect]
     Indication: CROHN'S DISEASE
     Dates: start: 20090529, end: 20090820

REACTIONS (5)
  - DIARRHOEA [None]
  - DIZZINESS [None]
  - HEADACHE [None]
  - PAIN IN EXTREMITY [None]
  - UPPER RESPIRATORY TRACT INFECTION [None]
